FAERS Safety Report 4919600-5 (Version None)
Quarter: 2006Q1

REPORT INFORMATION
  Report Type: 
  Country: None (occurrence: None)
  Receive Date: 20060222
  Receipt Date: 20050105
  Transmission Date: 20060701
  Serious: Yes (Hospitalization)
  Sender: FDA-Public Use
  Company Number: US-MERCK-0501USA00611

PATIENT
  Age: 23 Year
  Sex: Male
  Weight: 100 kg

DRUGS (1)
  1. VIOXX [Suspect]
     Indication: ARTHRALGIA
     Route: 048
     Dates: start: 19990801, end: 20040901

REACTIONS (3)
  - OEDEMA PERIPHERAL [None]
  - RENAL INJURY [None]
  - THROMBOSIS [None]
